FAERS Safety Report 7596458-X (Version None)
Quarter: 2011Q3

REPORT INFORMATION
  Report Type: 
  Country: None (occurrence: None)
  Receive Date: 20110708
  Receipt Date: 20110629
  Transmission Date: 20111222
  Serious: Yes (Hospitalization)
  Sender: FDA-Public Use
  Company Number: US-BIOGENIDEC-2011BI022370

PATIENT
  Age: 70 Year
  Sex: Female

DRUGS (2)
  1. TYSABRI [Suspect]
     Indication: MULTIPLE SCLEROSIS
     Route: 042
     Dates: start: 20091207
  2. TYSABRI [Suspect]
     Route: 042
     Dates: start: 20080822, end: 20090710

REACTIONS (8)
  - DIARRHOEA [None]
  - CYSTITIS [None]
  - IATROGENIC INJURY [None]
  - JOINT SWELLING [None]
  - MALAISE [None]
  - ASTHENIA [None]
  - INFECTION [None]
  - MOBILITY DECREASED [None]
